FAERS Safety Report 4911573-4 (Version None)
Quarter: 2006Q1

REPORT INFORMATION
  Report Type: 
  Country: None (occurrence: None)
  Receive Date: 20060213
  Receipt Date: 20060130
  Transmission Date: 20060701
  Serious: Yes (Death)
  Sender: FDA-Public Use
  Company Number: USA-2006-0023402

PATIENT
  Age: 34 Year
  Sex: Male
  Weight: 60.3 kg

DRUGS (6)
  1. OXYCODONE HYDROCHLOIRDE(SIMILAR TO NDA 20-553) (OXYCODONE HYDROCHLORID [Suspect]
     Indication: DRUG USE FOR UNKNOWN INDICATION
     Dosage: MG
  2. COTININE (COTININE) [Suspect]
     Indication: DRUG USE FOR UNKNOWN INDICATION
  3. ATROPINE [Suspect]
     Indication: DRUG USE FOR UNKNOWN INDICATION
  4. NORTRIPTYLINE HCL [Concomitant]
     Indication: DRUG USE FOR UNKNOWN INDICATION
  5. METHADONE HCL [Suspect]
     Indication: DRUG USE FOR UNKNOWN INDICATION
  6. DIAZEPAM [Suspect]
     Indication: DRUG USE FOR UNKNOWN INDICATION

REACTIONS (6)
  - ACCIDENTAL DEATH [None]
  - ACCIDENTAL OVERDOSE [None]
  - CARDIAC ARREST [None]
  - PNEUMONIA [None]
  - RESPIRATORY ARREST [None]
  - VOMITING [None]
